FAERS Safety Report 7257323-0 (Version None)
Quarter: 2011Q1

REPORT INFORMATION
  Report Type: 
  Country: None (occurrence: None)
  Receive Date: 20110129
  Receipt Date: 20100720
  Transmission Date: 20110831
  Serious: No
  Sender: FDA-Public Use
  Company Number: US-ABBOTT-10P-163-0658762-00

PATIENT
  Age: 69 Year
  Sex: Female

DRUGS (6)
  1. LAMOTRIGINE [Concomitant]
     Indication: CONVULSION
     Dosage: 6 DAILY IN AM AND PM
  2. METOPROLOL [Concomitant]
     Indication: HEART RATE IRREGULAR
  3. WARFARIN SODIUM [Concomitant]
     Indication: CEREBROVASCULAR ACCIDENT
     Dosage: DAILY
  4. HUMIRA [Suspect]
     Indication: CROHN'S DISEASE
     Dates: start: 20100601
  5. XIFAXAN [Concomitant]
     Indication: CROHN'S DISEASE
  6. ARICEPT [Concomitant]
     Indication: MEMORY IMPAIRMENT

REACTIONS (2)
  - INJECTION SITE PAIN [None]
  - INJECTION SITE HAEMATOMA [None]
